FAERS Safety Report 4532440-4 (Version None)
Quarter: 2004Q4

REPORT INFORMATION
  Report Type: 
  Country: None (occurrence: None)
  Receive Date: 20041220
  Receipt Date: 20011025
  Transmission Date: 20050328
  Serious: Yes (Hospitalization, Other)
  Sender: FDA-Public Use
  Company Number: US-MERCK-01104511

PATIENT
  Age: 65 Year
  Sex: Female
  Weight: 61 kg

DRUGS (8)
  1. VIOXX [Suspect]
     Indication: ARTHRITIS
     Route: 048
     Dates: start: 20000420, end: 20000420
  2. VIOXX [Suspect]
     Route: 048
     Dates: start: 20000823, end: 20000823
  3. VIOXX [Suspect]
     Route: 048
     Dates: start: 20010101
  4. VIOXX [Suspect]
     Indication: ARTHRALGIA
     Route: 048
     Dates: start: 20000420, end: 20000420
  5. VIOXX [Suspect]
     Route: 048
     Dates: start: 20000823, end: 20000823
  6. VIOXX [Suspect]
     Route: 048
     Dates: start: 20010101
  7. TIAZAC [Concomitant]
     Indication: HYPERTENSION
     Route: 065
     Dates: start: 19760101
  8. ADVIL [Concomitant]
     Route: 065
     Dates: start: 19940801

REACTIONS (16)
  - ACUTE SINUSITIS [None]
  - ANAEMIA [None]
  - ANGLE CLOSURE GLAUCOMA [None]
  - CHOLELITHIASIS [None]
  - DEHYDRATION [None]
  - FAECES DISCOLOURED [None]
  - HEADACHE [None]
  - MUSCLE CRAMP [None]
  - MYOCARDIAL INFARCTION [None]
  - NEPHROLITHIASIS [None]
  - OSTEOARTHRITIS [None]
  - PHARYNGOLARYNGEAL PAIN [None]
  - RENAL ARTERY ATHEROSCLEROSIS [None]
  - RENAL ARTERY STENOSIS [None]
  - RENAL FAILURE CHRONIC [None]
  - WOUND INFECTION STAPHYLOCOCCAL [None]
